FAERS Safety Report 6983312-7 (Version None)
Quarter: 2010Q3

REPORT INFORMATION
  Report Type: 
  Country: None (occurrence: None)
  Receive Date: 20100914
  Receipt Date: 20100827
  Transmission Date: 20110219
  Serious: Yes (Other)
  Sender: FDA-Public Use
  Company Number: US-PFIZER INC-2010089299

PATIENT
  Sex: Male

DRUGS (12)
  1. LYRICA [Suspect]
     Indication: FIBROMYALGIA
     Dosage: 300 MG, 2X/DAY
     Route: 048
     Dates: start: 20060101
  2. LYRICA [Suspect]
     Indication: HEADACHE
  3. LYRICA [Suspect]
     Indication: NECK PAIN
  4. SIMVASTATIN [Concomitant]
     Indication: CORONARY ARTERY DISEASE
     Dosage: 80 MG, UNK
     Route: 048
  5. PLAVIX [Concomitant]
     Indication: CORONARY ARTERY DISEASE
     Dosage: 75 MG, 1X/DAY
     Route: 048
  6. ACETYLSALICYLIC ACID [Concomitant]
     Indication: CORONARY ARTERY DISEASE
     Dosage: 325 MG, 1X/DAY
     Route: 048
  7. ZOFRAN [Concomitant]
     Indication: NAUSEA
     Dosage: 4 MG, UNK
     Route: 048
  8. ANDROGEL [Concomitant]
     Dosage: UNK
  9. ADVAIR DISKUS 100/50 [Concomitant]
     Dosage: UNK
  10. TRAMADOL [Concomitant]
     Dosage: UNK
  11. ALBUTEROL [Concomitant]
     Dosage: UNK
  12. DICYCLOMINE [Concomitant]
     Dosage: UNK

REACTIONS (4)
  - ABDOMINAL PAIN [None]
  - BILIARY DILATATION [None]
  - DUODENITIS [None]
  - REFLUX GASTRITIS [None]
